FAERS Safety Report 14128727 (Version 4)
Quarter: 2018Q3

REPORT INFORMATION
  Report Type: Not Available
  Country: US (occurrence: US)
  Receive Date: 20171026
  Receipt Date: 20180701
  Transmission Date: 20181010
  Serious: No
  Sender: FDA-Public Use
  Company Number: US-NEUROCRINE BIOSCIENCES INC.-2017NBI00904

PATIENT
  Age: 47 Year
  Sex: Female

DRUGS (8)
  1. CLONAZEPAM. [Suspect]
     Active Substance: CLONAZEPAM
     Indication: ANXIETY
  2. VITAMIN D [Concomitant]
     Active Substance: CHOLECALCIFEROL
  3. LORAZEPAM. [Concomitant]
     Active Substance: LORAZEPAM
  4. MIGRAINE MEDICATIONS [Concomitant]
     Active Substance: UNSPECIFIED INGREDIENT
     Indication: MIGRAINE
  5. MULTIVITAMIN [Concomitant]
     Active Substance: VITAMINS
  6. DEPAKOTE [Concomitant]
     Active Substance: DIVALPROEX SODIUM
     Dosage: 1500MG DAILY (TWO IN THE MORNING, TWO IN THE AFTERNOON AND TWO AT NIGHT)
  7. INGREZZA [Suspect]
     Active Substance: VALBENAZINE
     Indication: TARDIVE DYSKINESIA
     Route: 048
     Dates: start: 20170805, end: 20170811
  8. INGREZZA [Suspect]
     Active Substance: VALBENAZINE
     Route: 048
     Dates: start: 20170812, end: 20180608

REACTIONS (5)
  - Alopecia [Not Recovered/Not Resolved]
  - Drug ineffective [None]
  - Muscle twitching [Unknown]
  - Neurological symptom [Unknown]
  - Somnolence [Recovered/Resolved]

NARRATIVE: CASE EVENT DATE: 2017
